FAERS Safety Report 18416184 (Version 28)
Quarter: 2025Q2

REPORT INFORMATION
  Report Type: Spontaneous
  Country: US (occurrence: US)
  Receive Date: 20201022
  Receipt Date: 20250506
  Transmission Date: 20250716
  Serious: Yes (Other)
  Sender: PFIZER
  Company Number: US-PFIZER INC-2020326459

PATIENT
  Age: 59 Year
  Sex: Female
  Weight: 77.551 kg

DRUGS (1)
  1. ESTRING [Suspect]
     Active Substance: ESTRADIOL
     Indication: Stress urinary incontinence
     Dates: start: 1999

REACTIONS (10)
  - Neoplasm malignant [Unknown]
  - Limb operation [Unknown]
  - Throat cancer [Unknown]
  - Off label use [Unknown]
  - Drug effective for unapproved indication [Unknown]
  - Device use issue [Unknown]
  - Back pain [Unknown]
  - Asthenia [Unknown]
  - Memory impairment [Unknown]
  - Headache [Unknown]

NARRATIVE: CASE EVENT DATE: 19990101
